FAERS Safety Report 23798339 (Version 1)
Quarter: 2024Q2

REPORT INFORMATION
  Report Type: Spontaneous
  Country: US (occurrence: US)
  Receive Date: 20240430
  Receipt Date: 20240430
  Transmission Date: 20240716
  Serious: No
  Sender: FDA-Public Use
  Company Number: US-ELI_LILLY_AND_COMPANY-US202404017975

PATIENT
  Age: 52 Year
  Sex: Female

DRUGS (13)
  1. ZEPBOUND [Suspect]
     Active Substance: TIRZEPATIDE
     Indication: Weight control
     Dosage: 5 MG, UNKNOWN
     Route: 065
     Dates: start: 202403
  2. ZEPBOUND [Suspect]
     Active Substance: TIRZEPATIDE
     Indication: Weight control
     Dosage: 5 MG, UNKNOWN
     Route: 065
     Dates: start: 202403
  3. ZEPBOUND [Suspect]
     Active Substance: TIRZEPATIDE
     Indication: Weight control
     Dosage: 5 MG, UNKNOWN
     Route: 065
     Dates: start: 202403
  4. ZEPBOUND [Suspect]
     Active Substance: TIRZEPATIDE
     Indication: Weight control
     Dosage: 5 MG, UNKNOWN
     Route: 065
     Dates: start: 202403
  5. ZEPBOUND [Suspect]
     Active Substance: TIRZEPATIDE
     Indication: Blood cholesterol increased
     Dosage: 5 MG, UNKNOWN
     Route: 065
  6. ZEPBOUND [Suspect]
     Active Substance: TIRZEPATIDE
     Indication: Blood cholesterol increased
     Dosage: 5 MG, UNKNOWN
     Route: 065
  7. ZEPBOUND [Suspect]
     Active Substance: TIRZEPATIDE
     Indication: Blood cholesterol increased
     Dosage: 5 MG, UNKNOWN
     Route: 065
  8. ZEPBOUND [Suspect]
     Active Substance: TIRZEPATIDE
     Indication: Blood cholesterol increased
     Dosage: 5 MG, UNKNOWN
     Route: 065
  9. ZEPBOUND [Suspect]
     Active Substance: TIRZEPATIDE
     Indication: Blood glucose increased
  10. ZEPBOUND [Suspect]
     Active Substance: TIRZEPATIDE
     Indication: Blood glucose increased
  11. ZEPBOUND [Suspect]
     Active Substance: TIRZEPATIDE
     Indication: Blood glucose increased
  12. ZEPBOUND [Suspect]
     Active Substance: TIRZEPATIDE
     Indication: Blood glucose increased
  13. LOSATIN [Concomitant]
     Indication: Product used for unknown indication

REACTIONS (2)
  - Hypertension [Unknown]
  - Injection site paraesthesia [Unknown]
